FAERS Safety Report 7781822-6 (Version None)
Quarter: 2011Q3

REPORT INFORMATION
  Report Type: 
  Country: None (occurrence: None)
  Receive Date: 20110927
  Receipt Date: 20110926
  Transmission Date: 20111222
  Serious: Yes (Hospitalization, Other)
  Sender: FDA-Public Use
  Company Number: DE-GLAXOSMITHKLINE-D0072841A

PATIENT
  Sex: Female
  Weight: 4.3 kg

DRUGS (1)
  1. PAROXETINE HCL [Suspect]
     Indication: MAJOR DEPRESSION
     Dosage: 20MG PER DAY
     Route: 064

REACTIONS (7)
  - DYSPNOEA [None]
  - MATERNAL EXPOSURE DURING PREGNANCY [None]
  - CONVULSION NEONATAL [None]
  - LARGE FOR DATES BABY [None]
  - NEONATAL RESPIRATORY FAILURE [None]
  - OXYGEN SATURATION DECREASED [None]
  - HYPOTONIA NEONATAL [None]
